FAERS Safety Report 5356609-4 (Version None)
Quarter: 2007Q2

REPORT INFORMATION
  Report Type: 
  Country: None (occurrence: None)
  Receive Date: 20070614
  Receipt Date: 20070608
  Transmission Date: 20071010
  Serious: Yes (Hospitalization)
  Sender: FDA-Public Use
  Company Number: PHRM2007FR01564

PATIENT
  Age: 31 Year
  Sex: Female

DRUGS (1)
  1. LAMISIL [Suspect]
     Indication: NAIL TINEA
     Dosage: 250 MG, QD
     Route: 048
     Dates: start: 20070322, end: 20070329

REACTIONS (3)
  - EOSINOPHILIA [None]
  - RASH MACULO-PAPULAR [None]
  - SKIN EXFOLIATION [None]
